FAERS Safety Report 5403305-0 (Version None)
Quarter: 2007Q3

REPORT INFORMATION
  Report Type: 
  Country: None (occurrence: None)
  Receive Date: 20070801
  Receipt Date: 20070712
  Transmission Date: 20080115
  Serious: Yes (Other)
  Sender: FDA-Public Use
  Company Number: US-PFIZER INC-2006027743

PATIENT
  Sex: Male

DRUGS (6)
  1. BEXTRA [Suspect]
     Indication: MUSCULOSKELETAL PAIN
     Route: 048
  2. BEXTRA [Suspect]
     Indication: ROTATOR CUFF SYNDROME
  3. NEXIUM [Concomitant]
  4. OXYCODONE HYDROCHLORIDE W/PARACETAMOL [Concomitant]
     Dosage: TEXT:5 - 500MG CAPSULES
  5. ZETIA [Concomitant]
     Dates: start: 20040601
  6. RANITIDINE [Concomitant]

REACTIONS (5)
  - ANXIETY [None]
  - DEPRESSION [None]
  - GASTRIC DISORDER [None]
  - MYOCARDIAL INFARCTION [None]
  - RASH [None]
